FAERS Safety Report 13364524 (Version 1)
Quarter: 2017Q1

REPORT INFORMATION
  Report Type: Spontaneous
  Country: US (occurrence: US)
  Receive Date: 20170323
  Receipt Date: 20170323
  Transmission Date: 20170429
  Serious: No
  Sender: FDA-Public Use
  Company Number: US-ROCHE-1334919

PATIENT
  Sex: Female

DRUGS (8)
  1. VYVANSE [Concomitant]
     Active Substance: LISDEXAMFETAMINE DIMESYLATE
  2. XOLAIR [Suspect]
     Active Substance: OMALIZUMAB
     Indication: URTICARIA CHRONIC
     Route: 065
  3. QUERCETIN [Concomitant]
     Active Substance: QUERCETIN
  4. XOLAIR [Suspect]
     Active Substance: OMALIZUMAB
     Indication: SYSTEMIC MASTOCYTOSIS
  5. SINGULAIR [Concomitant]
     Active Substance: MONTELUKAST SODIUM
  6. ZANTAC [Concomitant]
     Active Substance: RANITIDINE HYDROCHLORIDE
  7. GASTROCROM [Concomitant]
     Active Substance: CROMOLYN SODIUM
  8. MANGANESE AMINO ACID CHELATE [Concomitant]

REACTIONS (3)
  - Product use issue [Unknown]
  - Fatigue [Unknown]
  - Abdominal distension [Unknown]
